FAERS Safety Report 24365792 (Version 1)
Quarter: 2024Q3

REPORT INFORMATION
  Report Type: Spontaneous
  Country: US (occurrence: US)
  Receive Date: 20240926
  Receipt Date: 20240926
  Transmission Date: 20241016
  Serious: Yes (Other)
  Sender: MACLEODS
  Company Number: US-MLMSERVICE-20240909-PI186813-00117-1

PATIENT

DRUGS (5)
  1. LIDOCAINE [Suspect]
     Active Substance: LIDOCAINE
     Indication: Pain in extremity
     Dosage: ONE ML OF PRESERVATIVE-FREE LIDOCAINE 1%; AS A TEST DOSE ON LEFT SIDE AND THEN ON THE RIGHT SIDE
     Route: 008
     Dates: start: 202210
  2. LIDOCAINE [Suspect]
     Active Substance: LIDOCAINE
     Indication: Back pain
  3. DEXAMETHASONE [Suspect]
     Active Substance: DEXAMETHASONE
     Indication: Pain in extremity
     Dosage: 7.5 MG PRESERVATIVE-FREE DEXAMETHASONE ON THE LEFT SIDE AND RIGHT SIDE
     Route: 008
     Dates: start: 202210
  4. DEXAMETHASONE [Suspect]
     Active Substance: DEXAMETHASONE
     Indication: Back pain
  5. OMNIPAQUE [Concomitant]
     Active Substance: IOHEXOL
     Indication: Product used for unknown indication
     Dosage: OMNIPAQUE 240 CONTRAST MEDIUM INJECTED UNDER DIGITAL SUBTRACTION IMAGING
     Route: 065

REACTIONS (2)
  - Paraplegia [Recovered/Resolved]
  - Incorrect route of product administration [Recovered/Resolved]

NARRATIVE: CASE EVENT DATE: 20221001
